FAERS Safety Report 22606872 (Version 1)
Quarter: 2023Q2

REPORT INFORMATION
  Report Type: Spontaneous
  Country: US (occurrence: None)
  Receive Date: 20230608
  Receipt Date: 20230608
  Transmission Date: 20230721
  Serious: Yes (Hospitalization)
  Sender: FDA-Public Use
  Company Number: None

PATIENT
  Sex: Female

DRUGS (2)
  1. DEVICE [Suspect]
     Active Substance: DEVICE
     Indication: Complement factor abnormal
     Route: 042
     Dates: start: 202304
  2. BERINERT [Suspect]
     Active Substance: HUMAN C1-ESTERASE INHIBITOR
     Indication: Complement factor abnormal
     Dates: start: 202304

REACTIONS (6)
  - Peripheral swelling [None]
  - Swollen tongue [None]
  - Swelling [None]
  - Product reconstitution quality issue [None]
  - Wrong device used [None]
  - Product contamination [None]

NARRATIVE: CASE EVENT DATE: 20230529
